FAERS Safety Report 23956001 (Version 1)
Quarter: 2024Q2

REPORT INFORMATION
  Report Type: Other
  Country: GB (occurrence: GB)
  Receive Date: 20240610
  Receipt Date: 20240610
  Transmission Date: 20240716
  Serious: Yes (Other)
  Sender: FDA-Public Use
  Company Number: None

PATIENT

DRUGS (2)
  1. SILDENAFIL [Suspect]
     Active Substance: SILDENAFIL
     Indication: Pulmonary hypertension
     Dosage: 50 MG TWICE A DAY
     Route: 065
     Dates: start: 20231214
  2. SILDENAFIL [Suspect]
     Active Substance: SILDENAFIL
     Dosage: 50MG BD
     Route: 065
     Dates: start: 20240320

REACTIONS (2)
  - Constipation [Not Recovered/Not Resolved]
  - Medication error [Unknown]

NARRATIVE: CASE EVENT DATE: 20240202
